FAERS Safety Report 10558424 (Version 4)
Quarter: 2015Q1

REPORT INFORMATION
  Report Type: Report from Study
  Country: US (occurrence: US)
  Receive Date: 20141031
  Receipt Date: 20150225
  Transmission Date: 20150720
  Serious: No
  Sender: FDA-Public Use
  Company Number: US-JNJFOC-20141006212

PATIENT
  Age: 61 Year
  Sex: Female
  Weight: 131.54 kg

DRUGS (33)
  1. MECLIZINE [Concomitant]
     Active Substance: MECLIZINE\MECLIZINE HYDROCHLORIDE
     Dosage: AS NEEDED
     Route: 048
  2. ALENDRONATE SODIUM. [Concomitant]
     Active Substance: ALENDRONATE SODIUM
     Dosage: DAYTIME, ON EMPTY STOMACH
     Route: 048
  3. DICLOFENAC SODIUM. [Concomitant]
     Active Substance: DICLOFENAC SODIUM
     Route: 065
  4. CITALOPRAM [Concomitant]
     Active Substance: CITALOPRAM HYDROBROMIDE
     Dosage: DAYTIME
     Route: 048
  5. PROPRANOLOL [Concomitant]
     Active Substance: PROPRANOLOL\PROPRANOLOL HYDROCHLORIDE
     Dosage: 1.5, NIGHTTIME
     Route: 065
  6. HYOSCYAMINE [Concomitant]
     Active Substance: HYOSCYAMINE
     Dosage: DOSE: 0.125 (UNITS UNSPECIFIED), DAYTIME??BEFORE MEALS AND AT BED TIME
     Route: 048
  7. MELOXICAM. [Concomitant]
     Active Substance: MELOXICAM
     Dosage: AS NEEDED FOR FLAREUPS
     Route: 065
  8. CITRACAL D [Concomitant]
     Route: 065
  9. AMITRIPTYLINE HYDROCHLORIDE. [Concomitant]
     Active Substance: AMITRIPTYLINE HYDROCHLORIDE
     Dosage: HALF TABLET AT NIGHT FOR 2 WEEKS AND THEN INCREASE TO 1 TABLET AT NIGHT
     Route: 065
  10. SILVER SULFADIAZINE. [Concomitant]
     Active Substance: SILVER SULFADIAZINE
     Dosage: APPLY BY TOPICAL ROUTE TO AFFECTED AREA ONLY
     Route: 061
  11. REMICADE [Suspect]
     Active Substance: INFLIXIMAB
     Indication: RHEUMATOID ARTHRITIS
     Route: 042
     Dates: end: 20141015
  12. METHOTREXATE [Concomitant]
     Active Substance: METHOTREXATE
     Indication: RHEUMATOID ARTHRITIS
     Dosage: 8 PILLS@ 2.5 ^EA^, DAYTIME
     Route: 048
     Dates: start: 20140326
  13. SIMVASTATIN. [Concomitant]
     Active Substance: SIMVASTATIN
     Dosage: 1, NIGHTTIME, BED TIME
     Route: 048
  14. HYDROCODONE [Concomitant]
     Active Substance: HYDROCODONE
     Dosage: DAYTIME
     Route: 065
  15. TOFACITINIB CITRATE [Concomitant]
     Active Substance: TOFACITINIB CITRATE
     Route: 065
  16. ROPINIROLE HYDROCHLORIDE. [Concomitant]
     Active Substance: ROPINIROLE HYDROCHLORIDE
     Dosage: 1 AND A HALF TABLET EVERY EVENING
     Route: 048
  17. REMICADE [Suspect]
     Active Substance: INFLIXIMAB
     Indication: RHEUMATOID ARTHRITIS
     Route: 042
     Dates: start: 20140820
  18. REMICADE [Suspect]
     Active Substance: INFLIXIMAB
     Indication: RHEUMATOID ARTHRITIS
     Route: 042
     Dates: start: 20140709
  19. NEURONTIN [Concomitant]
     Active Substance: GABAPENTIN
     Dosage: 4 DOSES
     Route: 048
  20. WARFARIN [Concomitant]
     Active Substance: WARFARIN
     Dosage: 1, NIGHTTIME, 2.5 MG EXCEPT WEDNESDAY AND SATURDAY
     Route: 065
  21. FOSAMAX [Concomitant]
     Active Substance: ALENDRONATE SODIUM
     Dosage: DAYTIME, ON EMPTY STOMACH
     Route: 048
  22. SPIRONOLACTONE. [Concomitant]
     Active Substance: SPIRONOLACTONE
     Dosage: DAYTIME
     Route: 048
  23. FLUTICASONE PROPIONATE. [Concomitant]
     Active Substance: FLUTICASONE PROPIONATE
     Dosage: 2 SPRAYS IN EACH NOSTRIL
     Route: 045
  24. CODEINE-GUAIFENESIN [Concomitant]
     Active Substance: CODEINE PHOSPHATE\GUAIFENESIN
     Dosage: 5 TO 10 ML ONCE EVERY 4 TO 6 HOURS AS NEEDED, CHERATUSSINAC 100-10MG/5 ML
     Route: 065
  25. CYCLOBENZAPRINE [Concomitant]
     Active Substance: CYCLOBENZAPRINE
     Dosage: HALF TO ONE TABLET AT NIGHT AS NEEDED FOR FLARE UPS
     Route: 065
  26. ESTER C [Concomitant]
     Route: 065
  27. REMICADE [Suspect]
     Active Substance: INFLIXIMAB
     Indication: RHEUMATOID ARTHRITIS
     Route: 042
     Dates: start: 20140723
  28. TRAZODONE [Concomitant]
     Active Substance: TRAZODONE HYDROCHLORIDE
     Dosage: 1, NIGHTTIME
     Route: 048
  29. FOLIC ACID. [Concomitant]
     Active Substance: FOLIC ACID
     Dosage: DAYTIME, 2 TABLETS
     Route: 048
  30. OXYBUTYNIN [Concomitant]
     Active Substance: OXYBUTYNIN
     Dosage: DAYTIME
     Route: 048
  31. HYDROCODONE BITARTRATE AND ACETAMINOPHEN [Concomitant]
     Active Substance: ACETAMINOPHEN\HYDROCODONE BITARTRATE
     Dosage: EVERY 4 TO 6 HOURS, 5-325 MG
     Route: 048
  32. LEVOTHYROXINE SODIUM. [Concomitant]
     Active Substance: LEVOTHYROXINE SODIUM
     Route: 065
  33. FUROSEMIDE. [Concomitant]
     Active Substance: FUROSEMIDE
     Route: 048

REACTIONS (4)
  - Pain [Recovered/Resolved]
  - Carpal tunnel syndrome [Unknown]
  - Drug ineffective [Not Recovered/Not Resolved]
  - Asthenia [Recovered/Resolved]

NARRATIVE: CASE EVENT DATE: 20140723
